FAERS Safety Report 19573062 (Version 4)
Quarter: 2021Q3

REPORT INFORMATION
  Report Type: Spontaneous
  Country: DE (occurrence: DE)
  Receive Date: 20210716
  Receipt Date: 20210818
  Transmission Date: 20211014
  Serious: Yes (Hospitalization, Other)
  Sender: FDA-Public Use
  Company Number: DE-ASTRAZENECA-2021A610141

PATIENT
  Age: 25 Year
  Sex: Female
  Weight: 63 kg

DRUGS (9)
  1. ESOMEPRAZOLE. [Suspect]
     Active Substance: ESOMEPRAZOLE MAGNESIUM
     Indication: GASTRIC DISORDER
     Dosage: 20 MILLIGRAM, AS REQUIRED
     Route: 048
     Dates: start: 201909, end: 201909
  2. ASTONIN H [Suspect]
     Active Substance: FLUDROCORTISONE
     Indication: HYPOALDOSTERONISM
     Route: 048
     Dates: start: 202001
  3. HYDROCORTISONE. [Suspect]
     Active Substance: HYDROCORTISONE
     Indication: ADDISON^S DISEASE
     Route: 048
     Dates: start: 20200226, end: 20200409
  4. ASTONIN H [Suspect]
     Active Substance: FLUDROCORTISONE
     Indication: HYPOALDOSTERONISM
     Route: 048
     Dates: start: 201906, end: 20190926
  5. ASTONIN H [Suspect]
     Active Substance: FLUDROCORTISONE
     Indication: HYPOALDOSTERONISM
     Route: 048
     Dates: start: 20190927, end: 202001
  6. HYDROCORTISONE. [Suspect]
     Active Substance: HYDROCORTISONE
     Indication: ADDISON^S DISEASE
     Route: 048
     Dates: start: 201510, end: 20200225
  7. HYDROCORTISONE. [Suspect]
     Active Substance: HYDROCORTISONE
     Indication: ADRENAL INSUFFICIENCY
     Route: 048
     Dates: start: 201510, end: 20200225
  8. HYDROCORTISONE. [Suspect]
     Active Substance: HYDROCORTISONE
     Indication: ADRENAL INSUFFICIENCY
     Route: 048
     Dates: start: 20200226, end: 20200409
  9. FOLIO FORTE [Suspect]
     Active Substance: FOLIC ACID\VITAMINS
     Indication: ALOPECIA
     Route: 048
     Dates: start: 202001

REACTIONS (2)
  - Hyperemesis gravidarum [Recovered/Resolved]
  - Maternal exposure during pregnancy [Unknown]

NARRATIVE: CASE EVENT DATE: 20191029
